FAERS Safety Report 5395211-5 (Version None)
Quarter: 2007Q3

REPORT INFORMATION
  Report Type: 
  Country: None (occurrence: None)
  Receive Date: 20070713
  Receipt Date: 20070328
  Transmission Date: 20080115
  Serious: Yes (Hospitalization)
  Sender: FDA-Public Use
  Company Number: US-JNJFOC-20061102062

PATIENT
  Age: 27 Year
  Sex: Female
  Weight: 67.087 kg

DRUGS (8)
  1. ORTHO EVRA [Suspect]
     Indication: DRUG USE FOR UNKNOWN INDICATION
     Dosage: TRANSDERMAL
     Route: 062
     Dates: start: 20040115, end: 20040701
  2. AMITRIPTYLINE HCL [Concomitant]
  3. NAPROXEN [Concomitant]
  4. ALLEGRA [Concomitant]
  5. ZANTAC 150 [Concomitant]
  6. SEREVENT [Concomitant]
  7. FLOVENT [Concomitant]
  8. ALBUTEROL [Concomitant]

REACTIONS (1)
  - CEREBROVASCULAR ACCIDENT [None]
